FAERS Safety Report 21972153 (Version 1)
Quarter: 2023Q1

REPORT INFORMATION
  Report Type: Other
  Country: GB (occurrence: GB)
  Receive Date: 20230209
  Receipt Date: 20230209
  Transmission Date: 20230418
  Serious: Yes (Other)
  Sender: FDA-Public Use
  Company Number: None

PATIENT
  Age: 55 Year
  Sex: Male
  Weight: 95 kg

DRUGS (13)
  1. PREDNISOLONE [Suspect]
     Active Substance: PREDNISOLONE
     Indication: Ill-defined disorder
     Dosage: UNK
     Route: 065
     Dates: start: 20230127
  2. ASPIRIN [Concomitant]
     Active Substance: ASPIRIN
     Indication: Ill-defined disorder
     Dosage: UNK (TAKE ONE DAILY TO PREVENT BLOOD CLOTS FORMING )
     Route: 065
     Dates: start: 20220920
  3. ASPIRIN [Concomitant]
     Active Substance: ASPIRIN
     Indication: Prophylaxis
  4. ATORVASTATIN [Concomitant]
     Active Substance: ATORVASTATIN
     Indication: Ill-defined disorder
     Dosage: UNK (TAKE ONE DAILY TO LOWER CHOLESTEROL)
     Route: 065
     Dates: start: 20220920
  5. BISOPROLOL [Concomitant]
     Active Substance: BISOPROLOL
     Indication: Ill-defined disorder
     Dosage: UNK (TAKE ONE DAILY TO REDUCE HEART STRAIN/FAILURE O...)
     Route: 065
     Dates: start: 20220920
  6. AMOXICILLIN\CLAVULANATE POTASSIUM [Concomitant]
     Active Substance: AMOXICILLIN\CLAVULANATE POTASSIUM
     Indication: Ill-defined disorder
     Dosage: UNK (TAKE ONE 3 TIMES/DAY )
     Route: 065
     Dates: start: 20230127
  7. BECLOMETHASONE\FORMOTEROL [Concomitant]
     Active Substance: BECLOMETHASONE\FORMOTEROL
     Indication: Ill-defined disorder
     Dosage: UNK (INHALE ONE OR TWO PUFFS TWICE A DAY TO CONTROL ...)
     Dates: start: 20220920
  8. MUPIROCIN [Concomitant]
     Active Substance: MUPIROCIN
     Indication: Ill-defined disorder
     Dosage: UNK (APPLY TO THE AFFECTED AREA THREE TIMES DAILY FO)
     Route: 065
     Dates: start: 20230127
  9. RAMIPRIL [Concomitant]
     Active Substance: RAMIPRIL
     Indication: Ill-defined disorder
     Dosage: UNK, QD (TAKE ONE DAILY TO LOWER BLOOD PRESSURE AND/OR T...)
     Route: 065
     Dates: start: 20220920
  10. RAMIPRIL [Concomitant]
     Active Substance: RAMIPRIL
     Indication: Hypotension
  11. ALBUTEROL [Concomitant]
     Active Substance: ALBUTEROL
     Indication: Ill-defined disorder
     Dosage: UNK (INHALE ONE OR TWO DOSES WHEN REQUIRED TO RELIEV... )
     Dates: start: 20220920
  12. SERTRALINE [Concomitant]
     Active Substance: SERTRALINE HYDROCHLORIDE
     Indication: Ill-defined disorder
     Dosage: UNK (TAKE ONE EACH DAY TO PREVENT LOW MOOD)
     Route: 065
     Dates: start: 20220915
  13. SERTRALINE [Concomitant]
     Active Substance: SERTRALINE HYDROCHLORIDE
     Indication: Prophylaxis

REACTIONS (2)
  - Anger [Recovered/Resolved]
  - Headache [Recovered/Resolved]

NARRATIVE: CASE EVENT DATE: 20230131
